FAERS Safety Report 6034831-1 (Version None)
Quarter: 2009Q1

REPORT INFORMATION
  Report Type: 
  Country: None (occurrence: None)
  Receive Date: 20090109
  Receipt Date: 20090109
  Transmission Date: 20090719
  Serious: No
  Sender: FDA-Public Use
  Company Number: None

PATIENT
  Sex: Male

DRUGS (8)
  1. ZOMETA [Suspect]
     Indication: RENAL CANCER METASTATIC
     Dosage: 4 MG MONTHLY IV
     Route: 042
     Dates: start: 20030201, end: 20040601
  2. FOCAL RADIATION [Concomitant]
  3. PROLEUKIN [Concomitant]
  4. NEXIVAR (CHEMOTHERAPY) [Concomitant]
  5. LOTREL [Concomitant]
  6. CARDURA [Concomitant]
  7. ZOCOR [Concomitant]
  8. ASPIRIN [Concomitant]

REACTIONS (1)
  - JAW DISORDER [None]
